FAERS Safety Report 9648825 (Version 1)
Quarter: 2013Q4

REPORT INFORMATION
  Report Type: Spontaneous
  Country: US (occurrence: US)
  Receive Date: 20131028
  Receipt Date: 20131028
  Transmission Date: 20140711
  Serious: No
  Sender: FDA-Public Use
  Company Number: US-TEVA-440617USA

PATIENT
  Age: 54 Year
  Sex: Female
  Weight: 62.2 kg

DRUGS (1)
  1. PARAGARD 380A [Suspect]
     Indication: CONTRACEPTION
     Dates: start: 1990

REACTIONS (1)
  - Wrong technique in drug usage process [Not Recovered/Not Resolved]
